FAERS Safety Report 24973279 (Version 1)
Quarter: 2025Q1

REPORT INFORMATION
  Report Type: Spontaneous
  Country: CN (occurrence: CN)
  Receive Date: 20250216
  Receipt Date: 20250216
  Transmission Date: 20250408
  Serious: Yes (Other)
  Sender: ABBVIE
  Company Number: CN-PFIZER INC-PV202500014125

PATIENT
  Age: 58 Year
  Sex: Female

DRUGS (57)
  1. AVIBACTAM SODIUM\CEFTAZIDIME [Suspect]
     Active Substance: AVIBACTAM SODIUM\CEFTAZIDIME
     Indication: Product used for unknown indication
     Route: 042
     Dates: start: 20250127, end: 20250127
  2. AVIBACTAM SODIUM\CEFTAZIDIME [Suspect]
     Active Substance: AVIBACTAM SODIUM\CEFTAZIDIME
     Indication: Product used for unknown indication
     Route: 042
     Dates: start: 20250120, end: 20250120
  3. AVIBACTAM SODIUM\CEFTAZIDIME [Suspect]
     Active Substance: AVIBACTAM SODIUM\CEFTAZIDIME
     Indication: Product used for unknown indication
     Dosage: 0.94 G, Q12H
     Route: 042
     Dates: start: 20250127, end: 20250201
  4. AVIBACTAM SODIUM\CEFTAZIDIME [Suspect]
     Active Substance: AVIBACTAM SODIUM\CEFTAZIDIME
     Indication: Product used for unknown indication
     Route: 042
     Dates: start: 20250121, end: 20250127
  5. ISAVUCONAZONIUM SULFATE [Concomitant]
     Active Substance: ISAVUCONAZONIUM SULFATE
     Indication: Product used for unknown indication
     Dosage: 200 MG, 1X/DAY(12AM)
     Dates: start: 20250122, end: 20250127
  6. ISAVUCONAZONIUM SULFATE [Concomitant]
     Active Substance: ISAVUCONAZONIUM SULFATE
     Indication: Product used for unknown indication
     Dosage: 200 MG, 1X/DAY () 200MG X  1 VIAL (200MG) QD (8AM))
     Dates: start: 20250127
  7. ISAVUCONAZONIUM SULFATE [Concomitant]
     Active Substance: ISAVUCONAZONIUM SULFATE
     Indication: Product used for unknown indication
     Dates: start: 20250121, end: 20250122
  8. AI QUAN LE [Concomitant]
     Indication: Product used for unknown indication
     Dosage: 500 UG, Q12H (500UG/2ML)
     Dates: start: 20250121, end: 20250127
  9. AMBROXOL HYDROCHLORIDE [Concomitant]
     Active Substance: AMBROXOL HYDROCHLORIDE
     Indication: Product used for unknown indication
     Route: 042
     Dates: start: 20250127, end: 20250203
  10. DEXTROSE [Concomitant]
     Active Substance: DEXTROSE MONOHYDRATE
     Indication: Product used for unknown indication
     Dosage: 200 ML, 1X/DAY (50G/100ML X 1 VIAL (200ML) QD (8AM))
     Dates: start: 20250127, end: 20250129
  11. DEXTROSE [Concomitant]
     Active Substance: DEXTROSE MONOHYDRATE
     Indication: Product used for unknown indication
     Dosage: 500 ML, 1X/DAY(8AM)
     Dates: start: 20250127, end: 20250129
  12. DEXTROSE [Concomitant]
     Active Substance: DEXTROSE MONOHYDRATE
     Indication: Product used for unknown indication
     Dosage: 250 ML, Q12H
     Route: 041
     Dates: start: 20250121, end: 20250127
  13. ACYCLOVIR [Concomitant]
     Active Substance: ACYCLOVIR
     Indication: Product used for unknown indication
     Dosage: 0.2 G, 2X/DAY
     Route: 048
     Dates: start: 20250117, end: 20250121
  14. WEI FU AN [Concomitant]
     Indication: Product used for unknown indication
     Dosage: 10 MG, 1X/DAY (10MG X 1 VIAL (10 MG) QD (8AM))
     Route: 042
     Dates: start: 20250120, end: 20250121
  15. SHU LUO KE [Concomitant]
     Indication: Product used for unknown indication
     Dates: start: 20250119, end: 20250120
  16. SODIUM CHLORIDE [Concomitant]
     Active Substance: SODIUM CHLORIDE
     Indication: Chemotherapy
     Dates: start: 20250119, end: 20250120
  17. SODIUM CHLORIDE [Concomitant]
     Active Substance: SODIUM CHLORIDE
     Indication: Chemotherapy
     Dosage: 2 ML, Q12H (10ML X 1 VIAL (2ML) ATOMIZATION INHALATION Q12H)
     Route: 055
     Dates: start: 20250121, end: 20250127
  18. SODIUM CHLORIDE [Concomitant]
     Active Substance: SODIUM CHLORIDE
     Indication: Chemotherapy
     Route: 041
     Dates: start: 20250121, end: 20250127
  19. SODIUM CHLORIDE [Concomitant]
     Active Substance: SODIUM CHLORIDE
     Indication: Chemotherapy
     Dosage: 100 ML, 1X/DAY (1 BAG (100ML) PUMP QD (8AM))
     Route: 042
  20. SODIUM CHLORIDE [Concomitant]
     Active Substance: SODIUM CHLORIDE
     Indication: Chemotherapy
     Dosage: 2 ML, 2X/DAY (10ML X 1 VIAL (2ML) ATOMIZATION INHALATION Q12H)
     Route: 055
     Dates: start: 20250127, end: 20250127
  21. SODIUM CHLORIDE [Concomitant]
     Active Substance: SODIUM CHLORIDE
     Indication: Chemotherapy
     Dosage: 150 ML, 1X/DAY (250ML X 1 BAG (150ML) QD (8AM))
     Dates: start: 20250120, end: 20250121
  22. SODIUM CHLORIDE [Concomitant]
     Active Substance: SODIUM CHLORIDE
     Indication: Chemotherapy
     Dates: start: 20250120, end: 20250120
  23. SODIUM CHLORIDE [Concomitant]
     Active Substance: SODIUM CHLORIDE
     Indication: Chemotherapy
     Dosage: 50 ML, ALTERNATE DAY (MICRO PUMP INFUSION QOD (8AM))
     Route: 042
     Dates: start: 20250127
  24. SODIUM CHLORIDE [Concomitant]
     Active Substance: SODIUM CHLORIDE
     Indication: Chemotherapy
     Dosage: 100 ML, 2X/DAY (100ML X1 BAG (100ML) Q12H )
     Dates: start: 20250120, end: 20250121
  25. SODIUM CHLORIDE [Concomitant]
     Active Substance: SODIUM CHLORIDE
     Indication: Chemotherapy
     Dates: start: 20250127, end: 20250127
  26. SODIUM CHLORIDE [Concomitant]
     Active Substance: SODIUM CHLORIDE
     Indication: Chemotherapy
     Dosage: 10 ML, 1X/DAY (1 VIAL (10ML) QD (4PM))
     Route: 042
     Dates: start: 20250118, end: 20250119
  27. SODIUM CHLORIDE [Concomitant]
     Active Substance: SODIUM CHLORIDE
     Indication: Chemotherapy
     Dosage: 240 ML, 2X/DAY (250ML X 1 VIAL (240ML) Q12H)
     Dates: start: 20250127
  28. SODIUM CHLORIDE [Concomitant]
     Active Substance: SODIUM CHLORIDE
     Indication: Chemotherapy
     Dosage: 240 ML, 1X/DAY(12AM)
     Route: 041
     Dates: start: 20250122, end: 20250127
  29. SODIUM CHLORIDE [Concomitant]
     Active Substance: SODIUM CHLORIDE
     Indication: Chemotherapy
     Dosage: 100 ML, 2X/DAY (100ML X 1 BAG (100ML) Q12H)
     Route: 042
     Dates: start: 20250120, end: 20250121
  30. SODIUM CHLORIDE [Concomitant]
     Active Substance: SODIUM CHLORIDE
     Indication: Chemotherapy
     Dosage: 10 ML, 1X/DAY(4PM)
     Route: 040
     Dates: start: 20250117, end: 20250118
  31. SODIUM CHLORIDE [Concomitant]
     Active Substance: SODIUM CHLORIDE
     Indication: Chemotherapy
     Route: 041
     Dates: start: 20250121, end: 20250122
  32. SODIUM CHLORIDE [Concomitant]
     Active Substance: SODIUM CHLORIDE
     Indication: Chemotherapy
     Dosage: 100 ML, Q12H (100ML X 1 BAG (100ML) INTRAVENOUS CONTACT)
     Route: 042
     Dates: start: 20250127, end: 20250201
  33. PU CHANG SHU [Concomitant]
     Indication: Product used for unknown indication
     Dosage: 1 MG, Q12H(SUSPENSION) 1MG/2ML X 1 VIAL (1MG) Q12H)
     Dates: start: 20250121, end: 20250127
  34. POLYMYXIN [Concomitant]
     Active Substance: POLYMYXIN
     Indication: Product used for unknown indication
     Dates: end: 20250121
  35. NPLATE [Concomitant]
     Active Substance: ROMIPLOSTIM
     Indication: Product used for unknown indication
     Dates: start: 20250118, end: 20250121
  36. YA LE [Concomitant]
     Indication: Product used for unknown indication
     Dosage: 750000 IU, Q12H
     Dates: start: 20250120, end: 20250121
  37. STERILE WATER [Concomitant]
     Active Substance: WATER
     Indication: Product used for unknown indication
     Dosage: 10 ML, Q12H
     Dates: start: 20250121, end: 20250127
  38. STERILE WATER [Concomitant]
     Active Substance: WATER
     Indication: Product used for unknown indication
     Dates: start: 20250127, end: 20250127
  39. STERILE WATER [Concomitant]
     Active Substance: WATER
     Indication: Product used for unknown indication
     Dosage: 10 ML, 1X/DAY (8AM)
     Dates: start: 20250127
  40. STERILE WATER [Concomitant]
     Active Substance: WATER
     Indication: Product used for unknown indication
     Dosage: 10 ML, 1X/DAY(12AM)
     Dates: start: 20250122, end: 20250127
  41. STERILE WATER [Concomitant]
     Active Substance: WATER
     Indication: Product used for unknown indication
     Route: 058
     Dates: start: 20250118, end: 20250121
  42. STERILE WATER [Concomitant]
     Active Substance: WATER
     Indication: Product used for unknown indication
     Dates: start: 20250120, end: 20250120
  43. STERILE WATER [Concomitant]
     Active Substance: WATER
     Indication: Product used for unknown indication
     Dates: start: 20250121, end: 20250122
  44. STERILE WATER [Concomitant]
     Active Substance: WATER
     Indication: Product used for unknown indication
     Dates: start: 20250121, end: 20250127
  45. STERILE WATER [Concomitant]
     Active Substance: WATER
     Indication: Product used for unknown indication
     Dosage: 10 ML, Q12H
     Dates: start: 20250127, end: 20250201
  46. AO ZHU XING [Concomitant]
     Indication: Product used for unknown indication
     Dosage: 50 MG, 2X/DAY (1 VIAL (50MG) Q12H )
     Dates: start: 20250120, end: 20250121
  47. MAGNESIUM ISOGLYCYRRHIZINATE [Concomitant]
     Active Substance: MAGNESIUM ISOGLYCYRRHIZINATE
     Indication: Product used for unknown indication
     Dosage: 200 MG, 1X/DAY (50MG/10ML X 1 VIAL (200MG) QD)
     Dates: start: 20250121, end: 20250123
  48. METHOTREXATE [Concomitant]
     Active Substance: METHOTREXATE
     Indication: Product used for unknown indication
     Dosage: 0.016 G, 1X/DAY (1G/10ML X 1 VIAL (0.016G) QD (4PM))
     Dates: start: 20250117, end: 20250118
  49. YING TE [Concomitant]
     Indication: Product used for unknown indication
     Dosage: 150 MG, 1X/DAY (50MG X1 VIAL (150MG) QD (8AM))
     Dates: start: 20250120, end: 20250121
  50. OSELTAMIVIR PHOSPHATE [Concomitant]
     Active Substance: OSELTAMIVIR PHOSPHATE
     Indication: Product used for unknown indication
     Dosage: 30 MG, 1X/DAY(TAKE WITH WATER QD (8AM))
     Dates: start: 20250127
  51. LETERMOVIR [Concomitant]
     Active Substance: LETERMOVIR
     Indication: Product used for unknown indication
     Dosage: 1 DF, 1X/DAY (8AM)
     Route: 048
     Dates: start: 20250119, end: 20250121
  52. LEUCOVORIN CALCIUM [Concomitant]
     Active Substance: LEUCOVORIN CALCIUM
     Indication: Product used for unknown indication
     Dosage: 0.010 G, 1X/DAY (0.1G/10ML X 1 VIAL (0.010G) QD (4PM))
     Route: 065
     Dates: start: 20250118, end: 20250119
  53. SHAN DI MING [Concomitant]
     Indication: Product used for unknown indication
     Dosage: 105 MG, 1X/DAY (24 HOURS MAINTENANCE, SPEED 4.2ML/H, ALWAYS, 8 AM)
     Dates: start: 20250123, end: 20250127
  54. QU TAN [Concomitant]
     Indication: Product used for unknown indication
     Dosage: 0.3 G, 2X/DAY (SOLUTION FOR INHALATION, 0.3G/3ML X 1VIAL (0.3G) Q12H)
     Dates: start: 20250127, end: 20250127
  55. WEN KE XIN [Concomitant]
     Indication: Product used for unknown indication
     Dosage: 1 G, Q12H
     Dates: start: 20250121, end: 20250127
  56. YI DA LU [Concomitant]
     Indication: Product used for unknown indication
     Dosage: 0.5 G, ALTERNATE DAY(8AM)
     Dates: start: 20250127
  57. POTASSIUM CHLORIDE [Concomitant]
     Active Substance: POTASSIUM CHLORIDE
     Indication: Product used for unknown indication
     Dosage: 30 ML, 1X/DAY(8AM)
     Dates: start: 20250127, end: 20250129

REACTIONS (4)
  - Sepsis [Unknown]
  - Product prescribing error [Unknown]
  - Varicose vein [Unknown]
  - Hypertension [Unknown]

NARRATIVE: CASE EVENT DATE: 20250127
